FAERS Safety Report 6001374-0 (Version None)
Quarter: 2008Q4

REPORT INFORMATION
  Report Type: 
  Country: None (occurrence: None)
  Receive Date: 20081215
  Receipt Date: 20081203
  Transmission Date: 20090506
  Serious: No
  Sender: FDA-Public Use
  Company Number: US-ELI_LILLY_AND_COMPANY-US200812002001

PATIENT
  Age: 65 Year
  Sex: Female

DRUGS (3)
  1. CYMBALTA [Suspect]
     Dosage: 30 MG, UNK
     Dates: start: 20080101
  2. CYMBALTA [Suspect]
     Dosage: 60 MG, UNK
     Dates: end: 20081101
  3. LYRICA [Concomitant]
     Indication: PAIN

REACTIONS (1)
  - HEPATIC ENZYME INCREASED [None]
